FAERS Safety Report 8805929 (Version 1)
Quarter: 2012Q4

REPORT INFORMATION
  Report Type: Spontaneous
  Country: US (occurrence: None)
  Receive Date: 20120918
  Receipt Date: 20120918
  Transmission Date: 20130627
  Serious: Yes (Hospitalization)
  Sender: FDA-Public Use
  Company Number: B0829505A

PATIENT
  Age: 50 Year
  Sex: Female

DRUGS (2)
  1. ACITRETIN [Suspect]
     Indication: PSORIASIS
  2. CEFTRIAXONE [Suspect]
     Indication: PRODUCT USED FOR UNKNOWN INDICATION

REACTIONS (1)
  - Erythrodermic psoriasis [None]
